FAERS Safety Report 12387504 (Version 3)
Quarter: 2016Q3

REPORT INFORMATION
  Report Type: Spontaneous
  Country: CA (occurrence: CA)
  Receive Date: 20160520
  Receipt Date: 20160901
  Transmission Date: 20161109
  Serious: Yes (Hospitalization, Other)
  Sender: FDA-Public Use
  Company Number: CA-ROCHE-1758487

PATIENT
  Age: 18 Year
  Sex: Female

DRUGS (5)
  1. PREDNISONE. [Concomitant]
     Active Substance: PREDNISONE
     Dosage: 50 MG, UNK (AND THEN TAPERS DOWN)
     Route: 065
  2. PREDNISONE. [Concomitant]
     Active Substance: PREDNISONE
     Indication: ASTHMA
     Dosage: QD (LAST 2 YEARS)
     Route: 065
  3. PREDNISONE. [Concomitant]
     Active Substance: PREDNISONE
     Dosage: INCREASED DOSE 12 TIMES
     Route: 065
  4. XOLAIR [Suspect]
     Active Substance: OMALIZUMAB
     Dosage: 375 MG, BIW (EVERY 2 WEEKS)
     Route: 058
  5. XOLAIR [Suspect]
     Active Substance: OMALIZUMAB
     Indication: ASTHMA
     Route: 058
     Dates: start: 20140204

REACTIONS (15)
  - Mycotic allergy [Unknown]
  - Nasal mucosal disorder [Unknown]
  - Crying [Unknown]
  - Asthma [Unknown]
  - Respiratory distress [Unknown]
  - Anxiety [Unknown]
  - Tympanic membrane disorder [Unknown]
  - Crepitations [Unknown]
  - Nasal oedema [Unknown]
  - Wheezing [Unknown]
  - Malaise [Unknown]
  - Hypersensitivity [Unknown]
  - Blood immunoglobulin E increased [Unknown]
  - Fear [Not Recovered/Not Resolved]
  - Increased bronchial secretion [Unknown]

NARRATIVE: CASE EVENT DATE: 201507
